FAERS Safety Report 9237553 (Version 2)
Quarter: 2013Q3

REPORT INFORMATION
  Report Type: Spontaneous
  Country: AU (occurrence: AU)
  Receive Date: 20130418
  Receipt Date: 20130705
  Transmission Date: 20140515
  Serious: Yes (Other)
  Sender: FDA-Public Use
  Company Number: AU-AMGEN-AUSSP2013026062

PATIENT
  Sex: Female

DRUGS (2)
  1. PROLIA [Suspect]
     Indication: PRODUCT USED FOR UNKNOWN INDICATION
  2. ETANERCEPT [Concomitant]

REACTIONS (1)
  - Osteonecrosis of jaw [Unknown]
